FAERS Safety Report 6100866-3 (Version None)
Quarter: 2009Q1

REPORT INFORMATION
  Report Type: 
  Country: None (occurrence: None)
  Receive Date: 20090224
  Receipt Date: 20090213
  Transmission Date: 20090719
  Serious: Yes (Other)
  Sender: FDA-Public Use
  Company Number: B0560442A

PATIENT
  Age: 28 Year
  Sex: Female

DRUGS (6)
  1. FONDAPARINUX SODIUM (FORMULATION UNKNOWN) (GENERIC)(FONDAPARINUX SODIU [Suspect]
     Indication: THROMBOSIS PROPHYLAXIS
     Dosage: SUBCUTANEOUS
     Route: 058
  2. ANESTHETIC (FORMULATION UNKNOWN) (ANESTHETIC) [Suspect]
  3. LIDOCAINE HCL [Suspect]
  4. SODIUM BICARBONATE [Suspect]
  5. EPINEPHRINE [Suspect]
  6. UNKNOWN (FORMULATION UNKNOWN) [Suspect]

REACTIONS (5)
  - CAESAREAN SECTION [None]
  - DRUG EXPOSURE DURING PREGNANCY [None]
  - LABOUR ONSET DELAYED [None]
  - PREGNANCY [None]
  - PREMATURE RUPTURE OF MEMBRANES [None]
